FAERS Safety Report 7768793-3 (Version None)
Quarter: 2011Q3

REPORT INFORMATION
  Report Type: 
  Country: None (occurrence: None)
  Receive Date: 20110922
  Receipt Date: 20110919
  Transmission Date: 20111222
  Serious: Yes (Death)
  Sender: FDA-Public Use
  Company Number: AU-NAPPMUNDI-USA-2011-0074662

PATIENT
  Sex: Female

DRUGS (2)
  1. BUPRENORPHINE [Suspect]
     Indication: PAIN
  2. BUPRENORPHINE [Suspect]
     Indication: PALLIATIVE CARE
     Dosage: 10 MCG, Q1H

REACTIONS (1)
  - DEATH [None]
